FAERS Safety Report 8899846 (Version 1)
Quarter: 2012Q4

REPORT INFORMATION
  Report Type: 
  Country: US (occurrence: US)
  Receive Date: 20121109
  Receipt Date: 20121109
  Transmission Date: 20130627
  Serious: Yes (Hospitalization, Other)
  Sender: FDA-Public Use
  Company Number: PHEH2012US020862

PATIENT
  Age: 65 Year
  Sex: Female
  Weight: 77.7 kg

DRUGS (12)
  1. AFINITOR [Suspect]
     Indication: MALIGNANT NIPPLE NEOPLASM
     Dosage: 10 mg, QD
     Route: 048
     Dates: start: 20121009
  2. AFINITOR [Suspect]
     Dosage: UNK
     Dates: start: 20121025, end: 20121101
  3. AROMASIN [Concomitant]
     Indication: BREAST CANCER
     Dosage: 25 mg, daily
     Route: 048
  4. NORVASC [Concomitant]
     Dosage: 5 mg, daily
     Route: 048
  5. TRILIPIX [Concomitant]
     Dosage: 135 mg, daily
     Route: 048
  6. SYNTHROID [Concomitant]
     Dosage: 50 ug, daily
     Route: 048
  7. DIOVAN [Concomitant]
     Dosage: 1 DF, daily
     Route: 048
  8. XGEVA [Concomitant]
  9. OMEGA 3 [Concomitant]
     Dosage: 1000 mg, daily
  10. CALCIUM [Concomitant]
     Dosage: 600 mg, TID
     Route: 048
  11. K-DUR [Concomitant]
     Dosage: 20 MEq, TID
     Route: 048
  12. TOPROL [Concomitant]
     Dosage: 50 mg, daily
     Route: 048

REACTIONS (13)
  - Hypercalcaemia [Unknown]
  - Urinary tract infection [Unknown]
  - Pollakiuria [Unknown]
  - Dysuria [Unknown]
  - Malaise [Unknown]
  - Pyrexia [Recovered/Resolved]
  - Chills [Unknown]
  - Nausea [Unknown]
  - Pain in extremity [Unknown]
  - Blood potassium decreased [Unknown]
  - Night sweats [Unknown]
  - Blood glucose increased [Unknown]
  - Hypocalcaemia [Unknown]
